FAERS Safety Report 22310184 (Version 1)
Quarter: 2023Q2

REPORT INFORMATION
  Report Type: Spontaneous
  Country: IN (occurrence: None)
  Receive Date: 20230510
  Receipt Date: 20230510
  Transmission Date: 20230721
  Serious: Yes (Disabling, Other)
  Sender: FDA-Public Use
  Company Number: None

PATIENT
  Age: 37 Year
  Sex: Female
  Weight: 80 kg

DRUGS (8)
  1. HYDROXYCHLOROQUINE [Suspect]
     Active Substance: HYDROXYCHLOROQUINE
     Indication: Uterine enlargement
     Dosage: OTHER QUANTITY : 15 TABLET(S);?FREQUENCY : TWICE A DAY;?
     Route: 048
     Dates: start: 20230416, end: 20230510
  2. Euthyrox50mcg [Concomitant]
  3. Lobet100mg [Concomitant]
  4. Letroz2.5mg [Concomitant]
  5. Folic acid supplement [Concomitant]
  6. FISH OIL\OMEGA-3 FATTY ACIDS [Concomitant]
     Active Substance: FISH OIL\OMEGA-3 FATTY ACIDS
  7. Vit B/D3/E [Concomitant]
  8. CALCIUM [Concomitant]
     Active Substance: CALCIUM

REACTIONS (3)
  - Visual impairment [None]
  - Retinal injury [None]
  - Fluid retention [None]

NARRATIVE: CASE EVENT DATE: 20230510
